FAERS Safety Report 18823564 (Version 1)
Quarter: 2021Q1

REPORT INFORMATION
  Report Type: Spontaneous
  Country: US (occurrence: US)
  Receive Date: 20210202
  Receipt Date: 20210202
  Transmission Date: 20210419
  Serious: No
  Sender: FDA-Public Use
  Company Number: US-MYLANLABS-2021M1004012

PATIENT
  Sex: Female
  Weight: 60 kg

DRUGS (2)
  1. FENTANYL TRANSDERMAL SYSTEM [Suspect]
     Active Substance: FENTANYL
     Indication: PAIN
     Dosage: 37.5 MICROGRAM, Q3D (EVERY 72 HOURS)
     Route: 062
  2. OXYCODONE [Concomitant]
     Active Substance: OXYCODONE
     Dosage: UNK

REACTIONS (1)
  - Drug ineffective [Not Recovered/Not Resolved]
